FAERS Safety Report 7332817-8 (Version None)
Quarter: 2011Q1

REPORT INFORMATION
  Report Type: 
  Country: None (occurrence: None)
  Receive Date: 20110304
  Receipt Date: 20110218
  Transmission Date: 20110831
  Serious: Yes (Hospitalization, Other)
  Sender: FDA-Public Use
  Company Number: PHHY2011JP10487

PATIENT
  Sex: Male
  Weight: 48 kg

DRUGS (11)
  1. TEGRETOL [Suspect]
     Indication: EPILEPSY
     Dosage: 200 MG, DAILY
     Route: 048
     Dates: start: 20001001
  2. NELUROLEN [Concomitant]
     Dosage: 5 MG, UNK
     Route: 048
  3. FOLIAMIN [Concomitant]
     Dosage: 15 MG, UNK
     Route: 048
  4. ADALAT [Concomitant]
     Dosage: 10 MG, UNK
     Route: 048
  5. MAGMITT [Concomitant]
     Dosage: 1500 MG, UNK
  6. SEROQUEL [Concomitant]
     Dosage: 100 MG, UNK
     Route: 048
  7. SEROQUEL [Concomitant]
     Dosage: 25 MG, UNK
     Route: 048
  8. LANSOPRAZOLE [Concomitant]
     Dosage: 15 MG, UNK
  9. DIURETICS [Concomitant]
  10. TEGRETOL [Suspect]
     Dosage: 200 MG, QD
     Route: 048
     Dates: start: 20100922, end: 20110204
  11. VITANEURIN [Concomitant]
     Dosage: 150 MG, UNK
     Route: 048

REACTIONS (11)
  - BRADYCARDIA [None]
  - PLEURAL EFFUSION [None]
  - RENAL FAILURE [None]
  - BLOOD PRESSURE SYSTOLIC INCREASED [None]
  - DYSPNOEA [None]
  - RED BLOOD CELL COUNT INCREASED [None]
  - BLOOD UREA INCREASED [None]
  - ASPARTATE AMINOTRANSFERASE INCREASED [None]
  - HAEMOGLOBIN DECREASED [None]
  - CARDIAC FAILURE CONGESTIVE [None]
  - SICK SINUS SYNDROME [None]
